FAERS Safety Report 19132027 (Version 1)
Quarter: 2021Q2

REPORT INFORMATION
  Report Type: Spontaneous
  Country: FR (occurrence: FR)
  Receive Date: 20210413
  Receipt Date: 20210413
  Transmission Date: 20210717
  Serious: Yes (Hospitalization)
  Sender: FDA-Public Use
  Company Number: FR-TEVA-2021-FR-1899368

PATIENT
  Age: 52 Year
  Sex: Male

DRUGS (1)
  1. MODIODAL 100 MG, COMPRIME [Suspect]
     Active Substance: MODAFINIL
     Indication: NARCOLEPSY
     Dosage: 200 MG
     Route: 048
     Dates: end: 202103

REACTIONS (2)
  - Transient ischaemic attack [Recovered/Resolved]
  - Torsade de pointes [Recovered/Resolved]

NARRATIVE: CASE EVENT DATE: 2019
